FAERS Safety Report 5101716-4 (Version None)
Quarter: 2006Q3

REPORT INFORMATION
  Report Type: 
  Country: None (occurrence: None)
  Receive Date: 20060731
  Receipt Date: 20060518
  Transmission Date: 20061208
  Serious: No
  Sender: FDA-Public Use
  Company Number: 2006PV014053

PATIENT
  Age: 59 Year
  Sex: Female
  Weight: 122.4712 kg

DRUGS (8)
  1. BYETTA [Suspect]
     Indication: DIABETES MELLITUS NON-INSULIN-DEPENDENT
     Dosage: 5 MCG;BID;SC
     Route: 058
     Dates: start: 20060511, end: 20060514
  2. GLYBURIDE/GLUCOPHAGE [Concomitant]
  3. COZAAR [Concomitant]
  4. ALTACE [Concomitant]
  5. ZOLOFT [Concomitant]
  6. MOTRIN [Concomitant]
  7. TYLENOL [Concomitant]
  8. VITAMIN B COMPLEX CAP [Concomitant]

REACTIONS (4)
  - BLOOD GLUCOSE INCREASED [None]
  - BLOOD PRESSURE INCREASED [None]
  - CARDIAC FLUTTER [None]
  - DECREASED APPETITE [None]
